FAERS Safety Report 15924094 (Version 2)
Quarter: 2019Q1

REPORT INFORMATION
  Report Type: Spontaneous
  Country: US (occurrence: US)
  Receive Date: 20190205
  Receipt Date: 20190219
  Transmission Date: 20190417
  Serious: No
  Sender: FDA-Public Use
  Company Number: US-ALLERGAN-1817067US

PATIENT
  Sex: Female

DRUGS (1)
  1. BOTOX [Suspect]
     Active Substance: ONABOTULINUMTOXINA
     Indication: MIGRAINE
     Dosage: UNK, SINGLE
     Route: 030

REACTIONS (6)
  - Influenza like illness [Unknown]
  - Abdominal pain upper [Unknown]
  - Sarcoidosis [Unknown]
  - Nausea [Unknown]
  - Migraine [Unknown]
  - Malaise [Unknown]
